FAERS Safety Report 9519102 (Version 1)
Quarter: 2013Q3

REPORT INFORMATION
  Report Type: Spontaneous
  Country: US (occurrence: None)
  Receive Date: 20130911
  Receipt Date: 20130911
  Transmission Date: 20140515
  Serious: Yes (Other)
  Sender: FDA-Public Use
  Company Number: None

PATIENT
  Age: 73 Year
  Sex: Male
  Weight: 89.81 kg

DRUGS (1)
  1. MYRBETRIQ [Suspect]
     Indication: BLADDER DISORDER
     Route: 048
     Dates: start: 20130902, end: 20130903

REACTIONS (1)
  - Blood pressure increased [None]
